FAERS Safety Report 9820750 (Version 1)
Quarter: 2014Q1

REPORT INFORMATION
  Report Type: Spontaneous
  Country: IT (occurrence: IT)
  Receive Date: 20140116
  Receipt Date: 20140116
  Transmission Date: 20141002
  Serious: Yes (Other)
  Sender: FDA-Public Use
  Company Number: IT-ALLERGAN-1400538US

PATIENT
  Age: 67 Year
  Sex: Male

DRUGS (2)
  1. OZURDEX [Suspect]
     Indication: MACULAR OEDEMA
     Dosage: 0.7 MG, SINGLE
     Route: 031
  2. OZURDEX [Suspect]
     Indication: RETINAL VEIN OCCLUSION

REACTIONS (3)
  - Vision blurred [Unknown]
  - Complication of device insertion [Unknown]
  - Cataract [Unknown]
